FAERS Safety Report 11892931 (Version 1)
Quarter: 2016Q1

REPORT INFORMATION
  Report Type: Spontaneous
  Country: FR (occurrence: FR)
  Receive Date: 20160106
  Receipt Date: 20160106
  Transmission Date: 20160526
  Serious: Yes (Hospitalization)
  Sender: FDA-Public Use
  Company Number: FR-BAYER-2016-000944

PATIENT
  Age: 21 Year
  Sex: Male

DRUGS (8)
  1. VITAMINES B1 B6 BAYER, COMPRIM? PELLICUL? [Concomitant]
     Dosage: UNK
  2. ZOPHREN [Concomitant]
     Active Substance: ONDANSETRON
     Dosage: UNK
  3. PARA-AMINOSALICYLIC ACID [Suspect]
     Active Substance: AMINOSALICYLIC ACID
     Dosage: DAILY DOSE 8 G
     Route: 048
     Dates: start: 20150409, end: 20150505
  4. NICOBION [Concomitant]
     Active Substance: NIACINAMIDE
     Dosage: UNK
  5. AMIKACIN SULFATE. [Suspect]
     Active Substance: AMIKACIN SULFATE
     Dosage: DAILY DOSE 600 MG
     Route: 042
     Dates: start: 20150409, end: 20150505
  6. IZILOX [Suspect]
     Active Substance: MOXIFLOXACIN HYDROCHLORIDE
     Dosage: 400 MG, QD
     Route: 048
     Dates: start: 20150409, end: 20150505
  7. ZYVOXID [Suspect]
     Active Substance: LINEZOLID
     Dosage: 600 MG, QD
     Route: 048
     Dates: start: 20150409, end: 20150505
  8. CYCLOSERINE. [Suspect]
     Active Substance: CYCLOSERINE
     Dosage: 500 MG, QOD
     Route: 048
     Dates: start: 20150409, end: 20150505

REACTIONS (3)
  - Neutropenia [Recovered/Resolved]
  - Bicytopenia [Recovered/Resolved]
  - Thrombocytopenia [Recovered/Resolved]

NARRATIVE: CASE EVENT DATE: 20150430
